FAERS Safety Report 8780686 (Version 3)
Quarter: 2012Q4

REPORT INFORMATION
  Report Type: 
  Country: JP (occurrence: JP)
  Receive Date: 20120913
  Receipt Date: 20121026
  Transmission Date: 20130627
  Serious: Yes (Hospitalization)
  Sender: FDA-Public Use
  Company Number: JP-ELI_LILLY_AND_COMPANY-JP201209001960

PATIENT
  Age: 35 Year
  Sex: Female
  Weight: 54 kg

DRUGS (7)
  1. ZYPREXA [Suspect]
     Dosage: 10 mg, qd
     Route: 048
  2. CHLORPROMAZINE HYDROCHLORIDE [Concomitant]
     Dosage: 75 mg, UNK
     Route: 048
  3. BIPERIDEN HYDROCHLORIDE [Concomitant]
     Dosage: 3 mg, UNK
     Route: 048
  4. QUETIAPINE FUMARATE [Concomitant]
     Dosage: 300 mg, UNK
     Route: 048
  5. FLAVINE ADENINE DINUCLEOTIDE [Concomitant]
     Dosage: 15 mg, UNK
     Route: 048
  6. PYRIDOXAL PHOSPHATE [Concomitant]
     Dosage: 30 mg, UNK
     Route: 048
  7. BROTIZOLAM [Concomitant]
     Dosage: 0.25 mg, UNK
     Route: 048

REACTIONS (1)
  - Water intoxication [Recovered/Resolved]
